FAERS Safety Report 9941444 (Version 1)
Quarter: 2014Q1

REPORT INFORMATION
  Report Type: Spontaneous
  Country: US (occurrence: US)
  Receive Date: 20140303
  Receipt Date: 20140303
  Transmission Date: 20141002
  Serious: No
  Sender: FDA-Public Use
  Company Number: US-ABBVIE-13P-163-1042326-00

PATIENT
  Age: 47 Year
  Sex: Female

DRUGS (3)
  1. HUMIRA [Suspect]
     Indication: COLITIS ULCERATIVE
     Route: 058
     Dates: start: 20130127, end: 20130127
  2. HUMIRA [Suspect]
  3. VITAMIN B12 [Concomitant]
     Indication: ASTHENIA
     Route: 030

REACTIONS (2)
  - Physical product label issue [Recovered/Resolved]
  - Injection site pain [Recovered/Resolved]
